FAERS Safety Report 8282384-X (Version None)
Quarter: 2012Q2

REPORT INFORMATION
  Report Type: 
  Country: None (occurrence: None)
  Receive Date: 20120413
  Receipt Date: 20120404
  Transmission Date: 20120825
  Serious: Yes (Hospitalization)
  Sender: FDA-Public Use
  Company Number: CA-ASTRAZENECA-2012SE16179

PATIENT
  Age: 91 Year
  Sex: Female

DRUGS (5)
  1. SEROQUEL [Suspect]
     Route: 048
     Dates: end: 20120223
  2. SEROQUEL [Suspect]
     Route: 048
     Dates: start: 20120301
  3. SEROQUEL [Suspect]
     Route: 048
     Dates: start: 20110501
  4. SEROQUEL [Suspect]
     Route: 048
     Dates: start: 20110901
  5. SEROQUEL [Suspect]
     Route: 048
     Dates: start: 20120131

REACTIONS (3)
  - EAR INFECTION [None]
  - MASTOIDITIS [None]
  - ABNORMAL BEHAVIOUR [None]
